FAERS Safety Report 4501329-9 (Version None)
Quarter: 2004Q4

REPORT INFORMATION
  Report Type: 
  Country: None (occurrence: None)
  Receive Date: 20041109
  Receipt Date: 20041227
  Transmission Date: 20050328
  Serious: Yes (Other)
  Sender: FDA-Public Use
  Company Number: 210060

PATIENT
  Sex: Male

DRUGS (1)
  1. RITUXAN [Suspect]
     Dosage: INTRAVENOUS
     Route: 042

REACTIONS (1)
  - ISCHAEMIC STROKE [None]
